FAERS Safety Report 19973928 (Version 1)
Quarter: 2021Q4

REPORT INFORMATION
  Report Type: Spontaneous
  Country: US (occurrence: US)
  Receive Date: 20211020
  Receipt Date: 20211020
  Transmission Date: 20220303
  Serious: No
  Sender: FDA-Public Use
  Company Number: US-CELGENE-USA-20211003217

PATIENT
  Age: 53 Year
  Sex: Female

DRUGS (1)
  1. ZEPOSIA [Suspect]
     Active Substance: OZANIMOD HYDROCHLORIDE
     Indication: Relapsing multiple sclerosis
     Dosage: .23, .46 MILLIGRAM
     Route: 048
     Dates: start: 20211001

REACTIONS (4)
  - Feeling abnormal [Unknown]
  - Disturbance in attention [Unknown]
  - Fatigue [Unknown]
  - Memory impairment [Unknown]

NARRATIVE: CASE EVENT DATE: 20211007
